FAERS Safety Report 13798527 (Version 1)
Quarter: 2017Q3

REPORT INFORMATION
  Report Type: Report from Study
  Country: US (occurrence: US)
  Receive Date: 20170727
  Receipt Date: 20170727
  Transmission Date: 20171127
  Serious: Yes (Other)
  Sender: FDA-Public Use
  Company Number: US-AMGEN-USASL2017111406

PATIENT
  Age: 44 Year
  Sex: Female
  Weight: 59.32 kg

DRUGS (8)
  1. PROLIA [Suspect]
     Active Substance: DENOSUMAB
     Indication: OSTEOPOROSIS
     Dosage: 60 MG, Q6MO
     Route: 058
     Dates: start: 2012
  2. ANASTROZOLE. [Concomitant]
     Active Substance: ANASTROZOLE
     Indication: OSTEOPOROSIS
     Dosage: 1 MG, QD
     Route: 048
  3. ATENOLOL. [Concomitant]
     Active Substance: ATENOLOL
     Dosage: 25 MG, BID
     Route: 048
  4. VITAMIN D [Concomitant]
     Active Substance: CHOLECALCIFEROL
     Dosage: 4000 IU, QD
  5. LEVOTHYROXINE. [Concomitant]
     Active Substance: LEVOTHYROXINE
     Dosage: 75 MUG, QD
     Route: 048
  6. AMITRIPTYLINE HYDROCHLORIDE. [Concomitant]
     Active Substance: AMITRIPTYLINE HYDROCHLORIDE
     Indication: HEADACHE
     Dosage: 25 MG, QD
     Route: 048
  7. CALCIUM+D [Concomitant]
     Active Substance: CALCIUM\VITAMIN D
     Dosage: 600MG-500 IU, QD
  8. CITRACAL [Concomitant]
     Active Substance: CALCIUM CITRATE
     Dosage: 1200 MG, QD

REACTIONS (20)
  - Burning sensation [Unknown]
  - Fatigue [Unknown]
  - Pain [Recovered/Resolved]
  - Cardiomyopathy [Unknown]
  - Dysphagia [Unknown]
  - Hypoaesthesia [Unknown]
  - Paraesthesia [Unknown]
  - Hypervitaminosis D [Unknown]
  - Joint swelling [Recovered/Resolved]
  - Femoral hernia repair [Unknown]
  - Arthralgia [Recovered/Resolved]
  - Off label use [Unknown]
  - Hypothyroidism [Unknown]
  - Appendicectomy [Unknown]
  - Autoimmune thyroiditis [Unknown]
  - Urinary tract infection [Unknown]
  - Intervertebral disc degeneration [Unknown]
  - Lipoma excision [Unknown]
  - Peripheral swelling [Unknown]
  - Fall [Unknown]

NARRATIVE: CASE EVENT DATE: 201404
